FAERS Safety Report 4933458-X (Version None)
Quarter: 2006Q1

REPORT INFORMATION
  Report Type: 
  Country: None (occurrence: None)
  Receive Date: 20060106
  Receipt Date: 20050808
  Transmission Date: 20060701
  Serious: No
  Sender: FDA-Public Use
  Company Number: 200511590BWH

PATIENT
  Age: 59 Year
  Sex: Male

DRUGS (6)
  1. LEVITRA [Suspect]
     Indication: ERECTILE DYSFUNCTION
     Dosage: 20 MG, QD, ORAL
     Route: 048
     Dates: start: 20050807
  2. LITHIUM [Concomitant]
  3. DESMOPRESSIN [Concomitant]
  4. AVODART [Concomitant]
  5. MULTIVITAMIN [Concomitant]
  6. TYLENOL (CAPLET) [Concomitant]

REACTIONS (1)
  - ERECTILE DYSFUNCTION [None]
